FAERS Safety Report 6955054-5 (Version None)
Quarter: 2010Q3

REPORT INFORMATION
  Report Type: 
  Country: None (occurrence: None)
  Receive Date: 20100825
  Receipt Date: 20100813
  Transmission Date: 20110219
  Serious: Yes (Other)
  Sender: FDA-Public Use
  Company Number: JPI-P-010990

PATIENT
  Age: 25 Year
  Sex: Female
  Weight: 52.1637 kg

DRUGS (5)
  1. XYREM [Suspect]
     Indication: FIBROMYALGIA
     Dosage: 2 GM (1 GM,2 IN 1 D),ORAL,  9 GM (4.5 GM, 2 IN 1 D),ORAL,  (4.5 GM FIRST DOSE/3 GM SECOND DOSE),ORAL
     Route: 048
     Dates: end: 20100807
  2. XYREM [Suspect]
     Indication: FIBROMYALGIA
     Dosage: 2 GM (1 GM,2 IN 1 D),ORAL,  9 GM (4.5 GM, 2 IN 1 D),ORAL,  (4.5 GM FIRST DOSE/3 GM SECOND DOSE),ORAL
     Route: 048
     Dates: start: 20070724
  3. TOPIRAMATE [Concomitant]
  4. VALACYCLOVIR [Concomitant]
  5. HYDROCODONE BITARTRATE AND ACETAMINOPHEN [Concomitant]

REACTIONS (4)
  - ENURESIS [None]
  - EPILEPSY [None]
  - PRODUCT CONTAINER ISSUE [None]
  - RADIAL NERVE PALSY [None]
